FAERS Safety Report 12411039 (Version 1)
Quarter: 2016Q2

REPORT INFORMATION
  Report Type: Spontaneous
  Country: US (occurrence: US)
  Receive Date: 20160527
  Receipt Date: 20160527
  Transmission Date: 20160815
  Serious: No
  Sender: FDA-Public Use
  Company Number: US-BAYER-2016-094256

PATIENT
  Age: 89 Year
  Sex: Female

DRUGS (2)
  1. CLARITIN REDITABS [Suspect]
     Active Substance: LORATADINE
     Indication: NASAL CONGESTION
  2. CLARITIN REDITABS [Suspect]
     Active Substance: LORATADINE
     Indication: SINUS CONGESTION
     Dosage: 1 DF, UNK
     Route: 048
     Dates: start: 20160513

REACTIONS (4)
  - Off label use [None]
  - Product solubility abnormal [None]
  - Wrong technique in product usage process [None]
  - Product use issue [None]

NARRATIVE: CASE EVENT DATE: 201605
